FAERS Safety Report 12300361 (Version 1)
Quarter: 2016Q2

REPORT INFORMATION
  Report Type: Spontaneous
  Country: JP (occurrence: JP)
  Receive Date: 20160425
  Receipt Date: 20160425
  Transmission Date: 20160815
  Serious: Yes (Other)
  Sender: FDA-Public Use
  Company Number: PHHY2016JP053540

PATIENT
  Age: 68 Year
  Sex: Male

DRUGS (2)
  1. IMATINIB [Suspect]
     Active Substance: IMATINIB
     Indication: CHRONIC MYELOID LEUKAEMIA
     Dosage: 300 MG, QD
     Route: 048
  2. IMATINIB [Suspect]
     Active Substance: IMATINIB
     Dosage: 300 MG, QD
     Route: 048

REACTIONS (7)
  - Pain in extremity [Recovered/Resolved]
  - Myofascitis [Recovered/Resolved]
  - Erythema [Recovered/Resolved]
  - Oedema peripheral [Recovered/Resolved]
  - Excessive granulation tissue [Recovered/Resolved]
  - Pyomyositis [Recovered/Resolved]
  - Retroperitoneal abscess [Recovered/Resolved]

NARRATIVE: CASE EVENT DATE: 201004
